FAERS Safety Report 9471385 (Version 1)
Quarter: 2013Q3

REPORT INFORMATION
  Report Type: Spontaneous
  Country: US (occurrence: US)
  Receive Date: 20130822
  Receipt Date: 20130822
  Transmission Date: 20140515
  Serious: Yes (Other)
  Sender: FDA-Public Use
  Company Number: US-BAYER-2013-101053

PATIENT
  Age: 76 Year
  Sex: Female
  Weight: 49.89 kg

DRUGS (7)
  1. CITRACAL [Suspect]
     Route: 048
  2. BAYER GENUINE ASPIRIN ORIGINAL STRENGTH [Suspect]
  3. OMEGA 3 [Concomitant]
  4. VITAMIN C [Concomitant]
  5. LOVASTATIN [Concomitant]
  6. ENALAPRIL [Concomitant]
  7. LUTEIN [Concomitant]

REACTIONS (2)
  - Myocardial infarction [Recovered/Resolved]
  - Therapeutic response unexpected [Recovered/Resolved]
